FAERS Safety Report 21950670 (Version 2)
Quarter: 2023Q1

REPORT INFORMATION
  Report Type: Spontaneous
  Country: DE (occurrence: DE)
  Receive Date: 20230203
  Receipt Date: 20230220
  Transmission Date: 20230418
  Serious: Yes (Life-Threatening, Hospitalization)
  Sender: FDA-Public Use
  Company Number: DE-TEVA-2023-DE-2851846

PATIENT
  Age: 40 Year
  Sex: Male

DRUGS (14)
  1. DEXAMETHASONE [Suspect]
     Active Substance: DEXAMETHASONE
     Indication: Portal vein thrombosis
     Dosage: 40 MG
     Route: 065
  2. DEXAMETHASONE [Suspect]
     Active Substance: DEXAMETHASONE
     Indication: Visceral venous thrombosis
  3. DEXAMETHASONE [Suspect]
     Active Substance: DEXAMETHASONE
     Indication: Thrombosis with thrombocytopenia syndrome
  4. PRIVIGEN [Suspect]
     Active Substance: HUMAN IMMUNOGLOBULIN G
     Indication: Portal vein thrombosis
     Dosage: 1 G/KG
     Route: 042
  5. PRIVIGEN [Suspect]
     Active Substance: HUMAN IMMUNOGLOBULIN G
     Indication: Visceral venous thrombosis
  6. PRIVIGEN [Suspect]
     Active Substance: HUMAN IMMUNOGLOBULIN G
     Indication: Thrombosis with thrombocytopenia syndrome
  7. ARGATROBAN [Suspect]
     Active Substance: ARGATROBAN
     Indication: Portal vein thrombosis
     Route: 065
  8. ARGATROBAN [Suspect]
     Active Substance: ARGATROBAN
     Indication: Visceral venous thrombosis
  9. ARGATROBAN [Suspect]
     Active Substance: ARGATROBAN
     Indication: Thrombosis with thrombocytopenia syndrome
  10. ALTEPLASE [Suspect]
     Active Substance: ALTEPLASE
     Indication: Portal vein thrombosis
     Dosage: APPLIED THROUGH BOTH CATHETERS AT A DOSAGE OF 0.5 MG/H
     Route: 065
  11. ALTEPLASE [Suspect]
     Active Substance: ALTEPLASE
     Indication: Visceral venous thrombosis
  12. ALTEPLASE [Suspect]
     Active Substance: ALTEPLASE
     Indication: Thrombosis with thrombocytopenia syndrome
  13. CLOPIDOGREL [Concomitant]
     Active Substance: CLOPIDOGREL BISULFATE
     Indication: Antiplatelet therapy
     Route: 065
  14. ASPIRIN [Concomitant]
     Active Substance: ASPIRIN
     Indication: Antiplatelet therapy
     Route: 065

REACTIONS (1)
  - Drug ineffective [Unknown]
